FAERS Safety Report 16539056 (Version 1)
Quarter: 2019Q3

REPORT INFORMATION
  Report Type: Spontaneous
  Country: US (occurrence: US)
  Receive Date: 20190705
  Receipt Date: 20190705
  Transmission Date: 20191004
  Serious: No
  Sender: FDA-Public Use
  Company Number: None

PATIENT
  Age: 50 Year
  Sex: Female
  Weight: 72 kg

DRUGS (8)
  1. SPRING VALLEY TUMERIC CIRCUMIN [Concomitant]
  2. MENAPSUES SUPPORT SUPPLEMENENTS [Concomitant]
  3. VENLAFAXINE [Concomitant]
     Active Substance: VENLAFAXINE HYDROCHLORIDE
  4. EQUATE COOL AND HEAT PAIN RELIEVING LIQUID [Suspect]
     Active Substance: MENTHOL
     Indication: SPONDYLITIS
     Route: 061
     Dates: start: 20190704, end: 20190704
  5. LAMOTROGINE [Concomitant]
     Active Substance: LAMOTRIGINE
  6. ISOTONEX OPC [Concomitant]
  7. PURE RASPBERRY KETONES [Concomitant]
  8. PURE PROBOITICS [Concomitant]

REACTIONS (2)
  - Chemical burn of skin [None]
  - Application site burn [None]

NARRATIVE: CASE EVENT DATE: 20190704
